FAERS Safety Report 10754194 (Version 1)
Quarter: 2015Q1

REPORT INFORMATION
  Report Type: Spontaneous
  Country: US (occurrence: US)
  Receive Date: 20150202
  Receipt Date: 20150202
  Transmission Date: 20150721
  Serious: Yes (Hospitalization, Other)
  Sender: FDA-Public Use
  Company Number: US-BAYER-200002311BWH

PATIENT
  Age: 71 Year
  Sex: Female

DRUGS (6)
  1. AVELOX [Suspect]
     Active Substance: MOXIFLOXACIN HYDROCHLORIDE
     Indication: CHRONIC SINUSITIS
     Route: 048
     Dates: start: 20000724, end: 20000724
  2. CLARITIN [Suspect]
     Active Substance: LORATADINE
     Indication: CHRONIC SINUSITIS
     Dosage: 10 MG, QD
     Route: 048
     Dates: start: 20000724, end: 20000724
  3. LIPITOR [Concomitant]
     Active Substance: ATORVASTATIN CALCIUM
     Dosage: 20 MG, QD
     Route: 048
  4. TOPROL XL [Concomitant]
     Active Substance: METOPROLOL SUCCINATE
     Dosage: 25 MG, QD
     Route: 048
  5. ASPIRIN. [Concomitant]
     Active Substance: ASPIRIN
     Dosage: 325 MG, QD
     Route: 048
  6. ACCUPRIL [Concomitant]
     Active Substance: QUINAPRIL HYDROCHLORIDE
     Dosage: 10 MG, QD
     Route: 048

REACTIONS (2)
  - Atrial fibrillation [Recovered/Resolved]
  - Syncope [Recovered/Resolved]

NARRATIVE: CASE EVENT DATE: 20000725
